FAERS Safety Report 6307543-4 (Version None)
Quarter: 2009Q3

REPORT INFORMATION
  Report Type: 
  Country: None (occurrence: None)
  Receive Date: 20090811
  Receipt Date: 20090729
  Transmission Date: 20100115
  Serious: Yes (Hospitalization)
  Sender: FDA-Public Use
  Company Number: 238130K09USA

PATIENT
  Age: 57 Year
  Sex: Male

DRUGS (2)
  1. REBIF [Suspect]
     Indication: MULTIPLE SCLEROSIS
     Dosage: 44 MCG, 3 IN 1 WEEKS, SUBCUTANEOUS
     Route: 058
     Dates: start: 20090410
  2. CITALOPRAM (CITALOPRAM /00582601/) [Concomitant]

REACTIONS (3)
  - CONDITION AGGRAVATED [None]
  - GOUT [None]
  - MULTIPLE SCLEROSIS RELAPSE [None]
